FAERS Safety Report 5722140-7 (Version None)
Quarter: 2008Q2

REPORT INFORMATION
  Report Type: 
  Country: None (occurrence: None)
  Receive Date: 20080429
  Receipt Date: 20070522
  Transmission Date: 20081010
  Serious: No
  Sender: FDA-Public Use
  Company Number: US-ASTRAZENECA-2007UW12605

PATIENT
  Age: 70 Year
  Sex: Female
  Weight: 76.2 kg

DRUGS (5)
  1. NEXIUM [Suspect]
     Indication: GASTRITIS
     Route: 048
     Dates: start: 20070504
  2. NEXIUM [Suspect]
     Indication: GASTROINTESTINAL DISORDER
     Route: 048
     Dates: start: 20070504
  3. PLENDIL [Concomitant]
  4. DIAZEPAM [Concomitant]
  5. DIOVAN [Concomitant]

REACTIONS (2)
  - DYSGEUSIA [None]
  - ILL-DEFINED DISORDER [None]
